FAERS Safety Report 18232002 (Version 1)
Quarter: 2020Q3

REPORT INFORMATION
  Report Type: Spontaneous
  Country: US (occurrence: US)
  Receive Date: 20200904
  Receipt Date: 20200904
  Transmission Date: 20201103
  Serious: Yes (Other)
  Sender: FDA-Public Use
  Company Number: US-PFIZER INC-2020342686

PATIENT
  Age: 74 Year
  Sex: Female
  Weight: 53.98 kg

DRUGS (1)
  1. IBRANCE [Suspect]
     Active Substance: PALBOCICLIB
     Indication: BREAST CANCER
     Dosage: 125 MG, CYCLIC (125MG, TABLET, BY MOUTH, ONCE DAILY FOR 21 DAYS ON, 7 DAYS OFF  )
     Route: 048
     Dates: start: 202008, end: 2020

REACTIONS (1)
  - Pleural effusion [Unknown]
